FAERS Safety Report 9669311 (Version 1)
Quarter: 2013Q4

REPORT INFORMATION
  Report Type: Spontaneous
  Country: GB (occurrence: None)
  Receive Date: 20131101
  Receipt Date: 20131101
  Transmission Date: 20140711
  Serious: Yes (Hospitalization)
  Sender: FDA-Public Use
  Company Number: VENL20130005

PATIENT
  Age: 36 Year
  Sex: Male

DRUGS (5)
  1. VENLAFAXINE HCL [Suspect]
     Indication: DEPRESSION
     Route: 048
     Dates: start: 200902
  2. QUETIAPINE [Suspect]
     Indication: DEPRESSION
     Route: 048
     Dates: start: 200905
  3. METHADONE (METHADONE) (UNKNOWN) (METHADONE) [Suspect]
     Indication: DRUG DEPENDENCE
     Route: 048
     Dates: start: 1997
  4. PEGYLATED INTERFERON(PEGINTERFERON ALFA-2A)(UNKNOWN)(PEGINTERFERON ALFA-2A) [Concomitant]
  5. LEVOTHYROXINE SODIUM TABLETS(LEVOTHYROXINE SODIUM)(50 MICROGRAM, TABLETS) (LEVOTHYROXINE SODIUM) [Concomitant]

REACTIONS (24)
  - Depression [None]
  - Confusional state [None]
  - Paranoia [None]
  - Incoherent [None]
  - Headache [None]
  - Grimacing [None]
  - Choreoathetosis [None]
  - Agitation [None]
  - Aggression [None]
  - Hyperhidrosis [None]
  - Illusion [None]
  - Hallucinations, mixed [None]
  - Encephalitis [None]
  - White blood cell count increased [None]
  - Gamma-glutamyltransferase increased [None]
  - Neuroleptic malignant syndrome [None]
  - Aspartate aminotransferase increased [None]
  - Alanine aminotransferase increased [None]
  - Nystagmus [None]
  - Pupillary reflex impaired [None]
  - Treatment noncompliance [None]
  - Restlessness [None]
  - Disorientation [None]
  - Affect lability [None]
